FAERS Safety Report 7124808-7 (Version None)
Quarter: 2010Q4

REPORT INFORMATION
  Report Type: 
  Country: None (occurrence: None)
  Receive Date: 20101129
  Receipt Date: 20101118
  Transmission Date: 20110411
  Serious: Yes (Other)
  Sender: FDA-Public Use
  Company Number: ES-AMGEN-ESPSP2010005621

PATIENT

DRUGS (1)
  1. NPLATE [Suspect]
     Dosage: 10 A?G/KG, UNK
     Dates: start: 20090101

REACTIONS (2)
  - PLATELET COUNT DECREASED [None]
  - VARICELLA [None]
